FAERS Safety Report 14377693 (Version 1)
Quarter: 2018Q1

REPORT INFORMATION
  Report Type: Spontaneous
  Country: US (occurrence: US)
  Receive Date: 20180111
  Receipt Date: 20180111
  Transmission Date: 20180509
  Serious: Yes (Other)
  Sender: FDA-Public Use
  Company Number: US-TAKEDA-2018TUS000350

PATIENT
  Sex: Female
  Weight: 83.9 kg

DRUGS (1)
  1. ENTYVIO [Suspect]
     Active Substance: VEDOLIZUMAB
     Indication: CROHN^S DISEASE
     Dosage: 300 MG, UNK
     Route: 042
     Dates: start: 20170706

REACTIONS (5)
  - Blood pressure decreased [Recovered/Resolved]
  - Alopecia [Recovering/Resolving]
  - Dizziness [Unknown]
  - Memory impairment [Not Recovered/Not Resolved]
  - Pulse abnormal [Recovered/Resolved]
